FAERS Safety Report 14125235 (Version 1)
Quarter: 2017Q4

REPORT INFORMATION
  Report Type: Report from Study
  Country: CA (occurrence: CA)
  Receive Date: 20171025
  Receipt Date: 20171025
  Transmission Date: 20180321
  Serious: Yes (Hospitalization, Other)
  Sender: FDA-Public Use
  Company Number: CA-BAYER-2017-172278

PATIENT
  Age: 58 Year
  Sex: Male

DRUGS (1)
  1. STIVARGA [Suspect]
     Active Substance: REGORAFENIB
     Indication: COLORECTAL CANCER METASTATIC
     Dosage: 120 MG DAILY
     Route: 048
     Dates: start: 20170106, end: 20170922

REACTIONS (9)
  - Diarrhoea [Unknown]
  - Gastrointestinal haemorrhage [Not Recovered/Not Resolved]
  - Packed red blood cell transfusion [Unknown]
  - Therapy cessation [Not Recovered/Not Resolved]
  - Drug hypersensitivity [Not Recovered/Not Resolved]
  - Haematemesis [Unknown]
  - Therapy cessation [Unknown]
  - Off label use [Not Recovered/Not Resolved]
  - Malaise [Unknown]

NARRATIVE: CASE EVENT DATE: 20170920
